FAERS Safety Report 10066589 (Version 4)
Quarter: 2014Q2

REPORT INFORMATION
  Report Type: Spontaneous
  Country: US (occurrence: US)
  Receive Date: 20140408
  Receipt Date: 20140507
  Transmission Date: 20141212
  Serious: Yes (Other)
  Sender: FDA-Public Use
  Company Number: CHPA2014US004452

PATIENT
  Age: 58 Year
  Sex: Female

DRUGS (1)
  1. PREVACID 24HR 15MG [Suspect]
     Dosage: 15 MG, QD
     Route: 048

REACTIONS (4)
  - Gastritis [Recovered/Resolved]
  - Malaise [Recovered/Resolved]
  - Abdominal pain upper [Recovered/Resolved]
  - Incorrect drug administration duration [Unknown]
